FAERS Safety Report 8784375 (Version 2)
Quarter: 2012Q4

REPORT INFORMATION
  Report Type: 
  Country: CA (occurrence: CA)
  Receive Date: 20120913
  Receipt Date: 20121120
  Transmission Date: 20130627
  Serious: Yes (Other)
  Sender: FDA-Public Use
  Company Number: CA-INCYTE CORPORATION-2012IN001711

PATIENT
  Sex: Female

DRUGS (4)
  1. JAKAVI [Suspect]
     Indication: MYELOFIBROSIS
     Dosage: 30 mg, daily
     Route: 048
     Dates: start: 201205
  2. JAKAVI [Suspect]
     Dosage: UNK, UNK
     Route: 048
  3. JAKAVI [Suspect]
     Dosage: 15 mg, daily
     Route: 048
  4. JAKAVI [Suspect]
     Dosage: 15 mg, bid
     Route: 048
     Dates: start: 201209

REACTIONS (15)
  - Depressed mood [Unknown]
  - Asthenia [Unknown]
  - Red blood cell count decreased [Unknown]
  - Heart rate increased [Unknown]
  - Diarrhoea [Recovered/Resolved]
  - Joint swelling [Unknown]
  - Nausea [Unknown]
  - Anxiety [Unknown]
  - Fatigue [Unknown]
  - Bone pain [Unknown]
  - Anaemia [Unknown]
  - Headache [Unknown]
  - Haemoglobin decreased [Unknown]
  - Dizziness [Unknown]
  - Weight increased [Unknown]
